FAERS Safety Report 10646148 (Version 1)
Quarter: 2014Q4

REPORT INFORMATION
  Report Type: Report from Study
  Country: CA (occurrence: CA)
  Receive Date: 20141211
  Receipt Date: 20141211
  Transmission Date: 20150529
  Serious: Yes (Hospitalization)
  Sender: FDA-Public Use
  Company Number: PHHY2014CA162298

PATIENT
  Age: 27 Year
  Sex: Male

DRUGS (1)
  1. CLOZARIL [Suspect]
     Active Substance: CLOZAPINE
     Indication: PRODUCT USED FOR UNKNOWN INDICATION
     Dosage: UNK
     Route: 048
     Dates: start: 20140325, end: 20141110

REACTIONS (4)
  - Haematemesis [Unknown]
  - Abdominal discomfort [Unknown]
  - Developmental delay [Unknown]
  - Nausea [Unknown]

NARRATIVE: CASE EVENT DATE: 20141111
